FAERS Safety Report 12434784 (Version 1)
Quarter: 2016Q2

REPORT INFORMATION
  Report Type: Spontaneous
  Country: US (occurrence: US)
  Receive Date: 20160603
  Receipt Date: 20160603
  Transmission Date: 20160815
  Serious: No
  Sender: FDA-Public Use
  Company Number: US-ROCHE-1752776

PATIENT
  Age: 61 Year
  Sex: Female

DRUGS (10)
  1. TYLENOL [Concomitant]
     Active Substance: ACETAMINOPHEN
  2. VITAMIN K2 [Concomitant]
     Active Substance: MENAQUINONE 6
  3. MEKINIST [Concomitant]
     Active Substance: TRAMETINIB DIMETHYL SULFOXIDE
  4. ATENOLOL. [Concomitant]
     Active Substance: ATENOLOL
  5. GABAPENTIN. [Concomitant]
     Active Substance: GABAPENTIN
  6. MINOCYCLINE HCL [Concomitant]
     Active Substance: MINOCYCLINE HYDROCHLORIDE
  7. COTELLIC [Suspect]
     Active Substance: COBIMETINIB
     Indication: OVARIAN CANCER
     Dosage: 21 DAYS OUT OF EVERY 28 DAYS
     Route: 048
  8. IBUPROFEN. [Concomitant]
     Active Substance: IBUPROFEN
  9. LISINOPRIL. [Concomitant]
     Active Substance: LISINOPRIL
  10. VITAMIN D3 [Concomitant]
     Active Substance: CHOLECALCIFEROL

REACTIONS (4)
  - Dry mouth [Unknown]
  - Diarrhoea [Unknown]
  - Dry skin [Unknown]
  - Fatigue [Unknown]
